FAERS Safety Report 16041791 (Version 6)
Quarter: 2019Q4

REPORT INFORMATION
  Report Type: Spontaneous
  Country: US (occurrence: US)
  Receive Date: 20190306
  Receipt Date: 20191203
  Transmission Date: 20200122
  Serious: Yes (Other)
  Sender: FDA-Public Use
  Company Number: US-PFIZER INC-2019013172

PATIENT
  Age: 71 Year
  Sex: Female
  Weight: 86 kg

DRUGS (20)
  1. VITAMIN D3 [Concomitant]
     Active Substance: CHOLECALCIFEROL
     Indication: BONE DISORDER
  2. ASHWAGANDHA [Concomitant]
     Active Substance: HERBALS
     Indication: IMMUNE SYSTEM DISORDER
     Dosage: 2 DF, DAILY (4 YEARS)
  3. MK-7 [Concomitant]
     Indication: CARDIOVASCULAR DISORDER
  4. ASHWAGANDHA [Concomitant]
     Active Substance: HERBALS
     Indication: STRESS
  5. MUCINEX DM [Concomitant]
     Active Substance: DEXTROMETHORPHAN HYDROBROMIDE\GUAIFENESIN
     Dosage: UNK [1200 MG GUAIFENESIN + 60 MG DEXTROMETHORPHAN]
  6. OMEPRAZOLE. [Concomitant]
     Active Substance: OMEPRAZOLE
     Dosage: 40 MG, UNK
  7. VITAMIN D3 [Concomitant]
     Active Substance: CHOLECALCIFEROL
     Indication: IMMUNE SYSTEM DISORDER
     Dosage: 10000 IU, DAILY (2 CAPSULES DAILY)
  8. MK-7 [Concomitant]
     Indication: BONE DISORDER
     Dosage: 90 UG, DAILY (5 YEARS)
  9. VITAMIN C [Concomitant]
     Active Substance: ASCORBIC ACID
     Indication: ANTIOXIDANT THERAPY
     Dosage: 4000 MG, DAILY [2 PILLS DAILY]
  10. XARELTO [Concomitant]
     Active Substance: RIVAROXABAN
     Dosage: 20 MG, UNK (SOON TO BE 10 MG)
  11. FASLODEX [Concomitant]
     Active Substance: FULVESTRANT
     Dosage: UNK UNK, MONTHLY
  12. IBRANCE [Suspect]
     Active Substance: PALBOCICLIB
     Indication: BREAST CANCER METASTATIC
     Dosage: 100 MG, CYCLIC (FOR 21 DAYS)
     Route: 048
  13. COENZYME Q10 [Suspect]
     Active Substance: UBIDECARENONE
     Indication: ORGAN PRESERVATION
  14. CALCIUM [Concomitant]
     Active Substance: CALCIUM
     Dosage: 6 DF, DAILY (3 AM, 3 PM TAKING 7-8 YEARS)
  15. UBIQUINOL [Concomitant]
     Active Substance: UBIQUINOL
     Dosage: 200 MG, DAILY (10 YEARS)
  16. XGEVA [Concomitant]
     Active Substance: DENOSUMAB
     Dosage: UNK, MONTHLY
  17. KRILL OIL [Concomitant]
     Active Substance: DIETARY SUPPLEMENT\KRILL OIL
     Dosage: 2 DF, DAILY (10 YEARS)
  18. LOSARTAN POTASSIUM. [Concomitant]
     Active Substance: LOSARTAN POTASSIUM
     Dosage: 50 MG, UNK
  19. COENZYME Q10 [Suspect]
     Active Substance: UBIDECARENONE
     Indication: REHABILITATION THERAPY
     Dosage: 1 DF, 1X/DAY (ONCE A DAY GEL CAPSULE)
     Dates: end: 201809
  20. CURCUMIN [Concomitant]
     Active Substance: CURCUMIN
     Indication: SUPPLEMENTATION THERAPY
     Dosage: 2 DF, DAILY (500-SF, 7 YEARS)

REACTIONS (3)
  - White blood cell count decreased [Unknown]
  - Hypermetabolism [Unknown]
  - Agranulocytosis [Unknown]
